FAERS Safety Report 23361407 (Version 1)
Quarter: 2024Q1

REPORT INFORMATION
  Report Type: Spontaneous
  Country: US (occurrence: US)
  Receive Date: 20240103
  Receipt Date: 20240103
  Transmission Date: 20240409
  Serious: No
  Sender: FDA-Public Use
  Company Number: US-SA-SAC20231227001139

PATIENT
  Age: 40 Year
  Sex: Female

DRUGS (1)
  1. DUPIXENT [Suspect]
     Active Substance: DUPILUMAB
     Indication: Dermatitis atopic
     Dosage: 300 MG, QOW
     Route: 058

REACTIONS (8)
  - Alopecia [Recovering/Resolving]
  - Rash pruritic [Unknown]
  - Sleep disorder [Unknown]
  - Skin exfoliation [Unknown]
  - Injection site bruising [Unknown]
  - Injection site pain [Unknown]
  - Rash [Unknown]
  - Device use error [Unknown]
